FAERS Safety Report 8338023-2 (Version None)
Quarter: 2012Q2

REPORT INFORMATION
  Report Type: 
  Country: None (occurrence: None)
  Receive Date: 20120504
  Receipt Date: 20120427
  Transmission Date: 20120825
  Serious: Yes (Other)
  Sender: FDA-Public Use
  Company Number: FR-ABBOTT-12P-056-0931097-00

PATIENT
  Age: 51 Year
  Sex: Female

DRUGS (10)
  1. ATORVASTATIN [Concomitant]
     Indication: HYPERCHOLESTEROLAEMIA
  2. TRANXENE [Concomitant]
     Indication: ANXIETY
  3. DEPAKOTE [Suspect]
     Indication: BIPOLAR DISORDER
     Dosage: 01 UNIT(S) ; TWICE A DAY
     Route: 048
     Dates: start: 20120101, end: 20120409
  4. LYRICA [Concomitant]
     Indication: PRODUCT USED FOR UNKNOWN INDICATION
  5. DEPAKOTE [Suspect]
     Indication: DYSTHYMIC DISORDER
  6. FLECAINIDE ACETATE [Concomitant]
     Indication: ARRHYTHMIA
  7. ASPIRIN [Concomitant]
     Indication: ANTICOAGULANT THERAPY
  8. IMOVANE [Concomitant]
     Indication: INSOMNIA
  9. EFFEXOR [Concomitant]
     Indication: DEPRESSION
  10. INSULIN [Concomitant]
     Indication: PRODUCT USED FOR UNKNOWN INDICATION
     Dates: start: 19710101

REACTIONS (3)
  - DIABETES MELLITUS INADEQUATE CONTROL [None]
  - ABDOMINAL PAIN UPPER [None]
  - DYSTONIA [None]
